FAERS Safety Report 9645396 (Version 1)
Quarter: 2013Q4

REPORT INFORMATION
  Report Type: Report from Study
  Country: CA (occurrence: CA)
  Receive Date: 20131025
  Receipt Date: 20131025
  Transmission Date: 20140711
  Serious: Yes (Death, Hospitalization, Other)
  Sender: FDA-Public Use
  Company Number: CA-ABBVIE-13P-028-1160440-00

PATIENT
  Age: 81 Year
  Sex: Male
  Weight: 79.3 kg

DRUGS (21)
  1. LUPRON DEPOT [Suspect]
     Indication: PROSTATE CANCER
     Route: 030
     Dates: start: 20130107, end: 20130715
  2. CEFTRIAXONE SODIUM [Concomitant]
     Indication: ANTIBIOTIC THERAPY
     Route: 042
     Dates: start: 20131013, end: 20131013
  3. CEFTRIAXONE SODIUM [Concomitant]
     Route: 042
     Dates: start: 20131008, end: 20131008
  4. FUROSEMIDE [Concomitant]
     Indication: PRODUCT USED FOR UNKNOWN INDICATION
     Dosage: ONCE
     Route: 042
     Dates: start: 20131012, end: 20131012
  5. DALTEPARIN SODIUM [Concomitant]
     Indication: PRODUCT USED FOR UNKNOWN INDICATION
     Dosage: 15000 U DAILY
     Route: 058
     Dates: start: 20131010, end: 20131015
  6. BISOPROLOL FUMARATE [Concomitant]
     Indication: PRODUCT USED FOR UNKNOWN INDICATION
     Dosage: ONCE AT 10:19
     Route: 048
     Dates: start: 20131010, end: 20131010
  7. BISOPROLOL FUMARATE [Concomitant]
     Route: 048
     Dates: start: 20131010, end: 20131015
  8. PANTOPRAZOLE SODIUM SESQUIHYDRATE [Concomitant]
     Indication: PRODUCT USED FOR UNKNOWN INDICATION
     Dosage: 40 MG DAILY
     Route: 048
     Dates: start: 20131008, end: 20131015
  9. FONDAPARINUX [Concomitant]
     Indication: PRODUCT USED FOR UNKNOWN INDICATION
     Dosage: 2.5 MG DAILY
     Route: 058
     Dates: start: 20131008, end: 20131009
  10. CLOPIDOGREL BISULFATE [Concomitant]
     Indication: PRODUCT USED FOR UNKNOWN INDICATION
     Dosage: 75 MG DAILY
     Route: 048
     Dates: start: 20131008, end: 20131009
  11. FONDAPARINUX [Concomitant]
     Indication: PRODUCT USED FOR UNKNOWN INDICATION
     Dosage: ONCE
     Route: 058
     Dates: start: 20131008, end: 20131008
  12. ATORVASTATIN CALCIUM [Concomitant]
     Indication: PRODUCT USED FOR UNKNOWN INDICATION
     Dosage: BED TIME
     Route: 048
     Dates: start: 20131008, end: 20131015
  13. DALTEPARIN SODIUM [Concomitant]
     Indication: PRODUCT USED FOR UNKNOWN INDICATION
     Route: 058
     Dates: start: 20131007, end: 20131008
  14. DOCUSATE SODIUM [Concomitant]
     Indication: PRODUCT USED FOR UNKNOWN INDICATION
     Route: 048
     Dates: start: 20131007, end: 20131015
  15. MULTIVITAMIN [Concomitant]
     Indication: PRODUCT USED FOR UNKNOWN INDICATION
     Dosage: 1 TAB DAILY
     Dates: start: 20131007, end: 20131015
  16. CHOLECALCIFEROL [Concomitant]
     Indication: PRODUCT USED FOR UNKNOWN INDICATION
     Dosage: 1000 U DAILY
     Route: 048
     Dates: start: 20131007, end: 20131015
  17. AMIODARONE HCL [Concomitant]
     Indication: PRODUCT USED FOR UNKNOWN INDICATION
     Dosage: AS DIRECTED, ONCE
     Route: 042
     Dates: start: 20131007, end: 20131007
  18. AMIODARONE HCL [Concomitant]
     Dosage: AS PER PHYSICIAN
     Route: 042
     Dates: start: 20131007, end: 20131008
  19. METOPROLOL TARTRATE [Concomitant]
     Indication: PRODUCT USED FOR UNKNOWN INDICATION
     Dosage: AT BEDTIME
     Route: 048
     Dates: start: 20131007, end: 20131010
  20. DOCUSATE SODIUM [Concomitant]
     Indication: PRODUCT USED FOR UNKNOWN INDICATION
     Dosage: ONCE
     Route: 058
     Dates: start: 20131006, end: 20131006
  21. LACTULOSE [Concomitant]
     Indication: PRODUCT USED FOR UNKNOWN INDICATION
     Dosage: 1 EA, ONCE
     Route: 048
     Dates: start: 20131006, end: 20131006

REACTIONS (4)
  - Prostate cancer [Fatal]
  - Femoral neck fracture [Not Recovered/Not Resolved]
  - Metastases to bone [Unknown]
  - Prostate cancer [Not Recovered/Not Resolved]
